FAERS Safety Report 7782468-6 (Version None)
Quarter: 2011Q3

REPORT INFORMATION
  Report Type: 
  Country: None (occurrence: None)
  Receive Date: 20110928
  Receipt Date: 20110921
  Transmission Date: 20111222
  Serious: Yes (Hospitalization)
  Sender: FDA-Public Use
  Company Number: US-BIOGENIDEC-2011BI032269

PATIENT
  Age: 55 Year
  Sex: Female

DRUGS (3)
  1. HEART MEDICATION (NOS) [Concomitant]
  2. AVONEX [Suspect]
     Indication: MULTIPLE SCLEROSIS
     Route: 030
     Dates: start: 20090101
  3. BROMOCRIPTINE MESYLATE [Concomitant]
     Indication: PITUITARY ENLARGEMENT

REACTIONS (3)
  - DYSPNOEA [None]
  - SUPRAVENTRICULAR TACHYCARDIA [None]
  - BREAST LUMP REMOVAL [None]
